FAERS Safety Report 7598498-3 (Version None)
Quarter: 2011Q3

REPORT INFORMATION
  Report Type: 
  Country: None (occurrence: None)
  Receive Date: 20110708
  Receipt Date: 20110629
  Transmission Date: 20111222
  Serious: Yes (Life-Threatening, Hospitalization)
  Sender: FDA-Public Use
  Company Number: JP-ELI_LILLY_AND_COMPANY-JP201106009104

PATIENT
  Age: 57 Year
  Sex: Female

DRUGS (1)
  1. GEMZAR [Suspect]

REACTIONS (3)
  - LIVER ABSCESS [None]
  - MALLORY-WEISS SYNDROME [None]
  - DUODENAL ULCER PERFORATION [None]
